FAERS Safety Report 5524429-3 (Version None)
Quarter: 2007Q4

REPORT INFORMATION
  Report Type: 
  Country: None (occurrence: None)
  Receive Date: 20071122
  Receipt Date: 20071110
  Transmission Date: 20080405
  Serious: Yes (Life-Threatening)
  Sender: FDA-Public Use
  Company Number: JP-BAYER-200710829BYL

PATIENT
  Age: 81 Year
  Sex: Female

DRUGS (1)
  1. GLUCOBAY [Suspect]
     Indication: DIABETES MELLITUS
     Dosage: TOTAL DAILY DOSE: 300 MG  UNIT DOSE: 100 MG
     Route: 048
     Dates: start: 20071008, end: 20071031

REACTIONS (1)
  - ILEUS [None]
